FAERS Safety Report 4605663-3 (Version None)
Quarter: 2005Q1

REPORT INFORMATION
  Report Type: 
  Country: None (occurrence: None)
  Receive Date: 20050310
  Receipt Date: 20050110
  Transmission Date: 20050727
  Serious: No
  Sender: FDA-Public Use
  Company Number: US-BRISTOL-MYERS SQUIBB COMPANY-12822979

PATIENT
  Age: 20 Year
  Sex: Female

DRUGS (2)
  1. MONISTAT [Suspect]
     Indication: VAGINAL MYCOSIS
     Route: 067
     Dates: start: 20041230, end: 20041230
  2. ORTHO TRI-CYCLEN [Concomitant]

REACTIONS (1)
  - DRUG INEFFECTIVE [None]
